FAERS Safety Report 14816430 (Version 1)
Quarter: 2018Q2

REPORT INFORMATION
  Report Type: Spontaneous
  Country: FR (occurrence: FR)
  Receive Date: 20180426
  Receipt Date: 20180426
  Transmission Date: 20180711
  Serious: Yes (Other)
  Sender: FDA-Public Use
  Company Number: FR-TEVA-2018-FR-886410

PATIENT
  Age: 36 Year
  Sex: Male
  Weight: 76 kg

DRUGS (1)
  1. GABAPENTINE TEVA 300 MG, G?LULE [Suspect]
     Active Substance: GABAPENTIN
     Indication: POST LUMBAR PUNCTURE SYNDROME
     Dosage: 900 MILLIGRAM DAILY;
     Route: 048

REACTIONS (4)
  - Tremor [Recovering/Resolving]
  - Hypoaesthesia [Recovering/Resolving]
  - Hypoaesthesia oral [Recovering/Resolving]
  - Facial paralysis [Recovering/Resolving]
